FAERS Safety Report 7428591-7 (Version None)
Quarter: 2011Q2

REPORT INFORMATION
  Report Type: 
  Country: None (occurrence: None)
  Receive Date: 20110421
  Receipt Date: 20091122
  Transmission Date: 20111010
  Serious: Yes (Death, Other)
  Sender: FDA-Public Use
  Company Number: US-BAYER-200940707NA

PATIENT
  Age: 68 Year
  Sex: Male
  Weight: 73.923 kg

DRUGS (28)
  1. FENTANYL [Concomitant]
     Dosage: MULTIPLE DOSES
     Route: 042
     Dates: start: 20010809
  2. HEPARIN [Concomitant]
     Dosage: UNK
     Route: 042
     Dates: start: 20010809
  3. PROTAMINE SULFATE [Concomitant]
     Dosage: 300 MG, UNK
     Route: 042
     Dates: start: 20010809
  4. TRASYLOL [Suspect]
     Dosage: 50CC/HOUR
     Route: 042
     Dates: start: 20010809
  5. ANCEF [Concomitant]
     Dosage: 2 G, UNK
     Route: 042
     Dates: start: 20010809
  6. AMIODARONE [Concomitant]
     Dosage: 200 MG, UNK
     Route: 048
  7. LOPRESSOR [Concomitant]
     Dosage: 25 MG, BID
     Route: 048
  8. BIAXIN [Concomitant]
     Dosage: 500 MG, BID
  9. MORPHINE SULFATE [Concomitant]
     Route: 042
  10. DOPAMINE HCL [Concomitant]
     Dosage: 250CC, TITRATED
     Dates: start: 20010809
  11. K-DUR [Concomitant]
     Dosage: 20MEQ
  12. COUMADIN [Concomitant]
     Dosage: 2.5 MG, QD
     Route: 048
  13. VASOTEC [ENALAPRILAT] [Concomitant]
     Dosage: 2.5 MG, QD
  14. KAYEXALATE [Concomitant]
     Route: 048
  15. BUMEX [Concomitant]
     Dosage: UNK
     Route: 042
     Dates: start: 20010809
  16. TRASYLOL [Suspect]
     Indication: PRODUCT USED FOR UNKNOWN INDICATION
     Dosage: 1CC, TEST
     Route: 042
     Dates: start: 20010908
  17. AMIODARONE [Concomitant]
     Dosage: 33CC/HOUR
     Route: 042
     Dates: start: 20010809
  18. NITROGLYCERIN [Concomitant]
     Dosage: 50 MG, UNK
     Route: 042
     Dates: start: 20010809
  19. NITROGLYCERIN [Concomitant]
     Dosage: 250CC
     Route: 042
     Dates: start: 20010809
  20. VERSED [Concomitant]
     Dosage: 3 MG, UNK
     Route: 042
     Dates: start: 20010809
  21. TRASYLOL [Suspect]
     Dosage: 200CC, OVER 20-30 MINUTES
     Route: 042
     Dates: start: 20010809
  22. MONOPRIL [Concomitant]
     Indication: HYPERTENSION
     Dosage: UNK
     Dates: start: 19900101, end: 20020101
  23. LASIX [Concomitant]
     Dosage: 40 MG, QD
  24. PAVULON [Concomitant]
     Dosage: UNK
     Route: 042
     Dates: start: 20010809
  25. LEVAQUIN [Concomitant]
     Dosage: 500 MG, QD
     Route: 048
     Dates: start: 20011030
  26. ENALAPRIL MALEATE [Concomitant]
     Dosage: 2.5 MG, QD
     Route: 048
  27. COMBIVENT [Concomitant]
     Dosage: 2 PUFFS
  28. DOPAMINE HCL [Concomitant]
     Dosage: 400 MG, UNK
     Route: 042
     Dates: start: 20010809

REACTIONS (13)
  - RENAL FAILURE [None]
  - ANXIETY [None]
  - MULTI-ORGAN FAILURE [None]
  - STRESS [None]
  - INJURY [None]
  - DEATH [None]
  - EMOTIONAL DISTRESS [None]
  - UNEVALUABLE EVENT [None]
  - ANHEDONIA [None]
  - RENAL INJURY [None]
  - RENAL IMPAIRMENT [None]
  - FEAR [None]
  - PAIN [None]
